FAERS Safety Report 7301134-4 (Version None)
Quarter: 2011Q1

REPORT INFORMATION
  Report Type: 
  Country: None (occurrence: None)
  Receive Date: 20110218
  Receipt Date: 20101221
  Transmission Date: 20110831
  Serious: Yes (Hospitalization, Other)
  Sender: FDA-Public Use
  Company Number: JP-BAYER-200911341BYL

PATIENT
  Sex: Male
  Weight: 66 kg

DRUGS (20)
  1. BUP-4 [Concomitant]
     Indication: PROPHYLAXIS
     Dosage: 10 MG (DAILY DOSE), , ORAL
     Route: 048
     Dates: start: 20090416, end: 20090421
  2. ATARAX [Concomitant]
     Indication: PREMEDICATION
     Dosage: 25 MG (DAILY DOSE), , INTRAMUSCULAR
     Route: 030
     Dates: start: 20090416, end: 20090416
  3. GRANISETRON HCL [Concomitant]
     Indication: PROPHYLAXIS
     Dosage: 1 MG (DAILY DOSE), , INTRAVENOUS
     Route: 042
     Dates: start: 20090416, end: 20090416
  4. COLAC [BISACODYL] [Concomitant]
     Indication: CONSTIPATION PROPHYLAXIS
     Dosage: 1 DF (DAILY DOSE), , ORAL
     Route: 048
     Dates: start: 20090418, end: 20090418
  5. CISPLATIN [Concomitant]
     Dosage: 60 MG, QD
     Route: 013
     Dates: start: 20090416, end: 20090416
  6. LECICARBON [Concomitant]
     Indication: CONSTIPATION PROPHYLAXIS
     Dosage: 1 DF (DAILY DOSE), , RECTAL
     Route: 054
     Dates: start: 20090416, end: 20090416
  7. ASPIRIN [Concomitant]
     Dosage: 100 MG (DAILY DOSE), , ORAL
     Route: 048
     Dates: start: 20090417, end: 20090421
  8. FRANDOL [Concomitant]
     Dosage: 40 MG (DAILY DOSE), , ORAL
     Route: 048
     Dates: start: 20090417, end: 20090421
  9. CISPLATIN [Concomitant]
     Dosage: 60 MG, QD
     Route: 013
     Dates: start: 20090416, end: 20090416
  10. PENTAZOCINE LACTATE [Concomitant]
     Indication: PREMEDICATION
     Dosage: 15 MG (DAILY DOSE), , INTRAMUSCULAR
     Route: 030
     Dates: start: 20090416, end: 20090416
  11. DEXART [Concomitant]
     Dosage: 4 MG, QD
     Route: 042
     Dates: start: 20090417, end: 20090418
  12. CISPLATIN [Concomitant]
     Indication: HEPATIC NEOPLASM MALIGNANT
     Route: 025
  13. KERATINAMIN [Concomitant]
     Indication: PROPHYLAXIS
     Route: 061
     Dates: start: 20090414, end: 20090421
  14. URSO 250 [Concomitant]
     Dosage: 400 MG (DAILY DOSE), , ORAL
     Route: 048
     Dates: start: 20090416, end: 20090421
  15. NEXAVAR [Suspect]
     Indication: HEPATIC NEOPLASM MALIGNANT
     Dosage: 800 MG, QD
     Route: 048
     Dates: start: 20090416, end: 20090421
  16. DEXART [Concomitant]
     Indication: PROPHYLAXIS
     Dosage: 8 MG, QD
     Route: 042
     Dates: start: 20090416, end: 20090416
  17. MANNIGEN [Concomitant]
     Indication: PROPHYLAXIS
     Dosage: 200 ML (DAILY DOSE), , INTRAVENOUS
     Route: 042
     Dates: start: 20090416, end: 20090416
  18. ITOROL [Concomitant]
     Dosage: 40 MG (DAILY DOSE), , ORAL
     Route: 048
     Dates: start: 20090416, end: 20090417
  19. CALSLOT [Concomitant]
     Dosage: 10 MG (DAILY DOSE), , ORAL
     Route: 048
     Dates: start: 20090416, end: 20090421
  20. POLLAKISU [Concomitant]
     Indication: PROPHYLAXIS
     Dosage: 6 MG (DAILY DOSE), , ORAL
     Route: 048
     Dates: start: 20090417, end: 20090421

REACTIONS (7)
  - INFECTION [None]
  - PORTAL VEIN THROMBOSIS [None]
  - PYREXIA [None]
  - DECREASED APPETITE [None]
  - GASTROINTESTINAL HAEMORRHAGE [None]
  - HAEMOGLOBIN DECREASED [None]
  - WHITE BLOOD CELL COUNT INCREASED [None]
